FAERS Safety Report 7451874-1 (Version None)
Quarter: 2011Q2

REPORT INFORMATION
  Report Type: 
  Country: None (occurrence: None)
  Receive Date: 20110502
  Receipt Date: 20110422
  Transmission Date: 20111010
  Serious: Yes (Hospitalization, Other)
  Sender: FDA-Public Use
  Company Number: US-ASTRAZENECA-2010SE14026

PATIENT
  Age: 53 Year
  Sex: Male

DRUGS (26)
  1. XANAX [Concomitant]
     Route: 048
  2. NITROGLYCERIN [Concomitant]
     Route: 060
  3. ASPIRIN [Concomitant]
     Route: 048
  4. MORPHINE [Concomitant]
     Route: 048
  5. SYMBICORT [Suspect]
     Route: 055
  6. DURAGESIC [Concomitant]
     Dosage: 75 MCG/HR PATCH 72 HR, 1 PATCH EVERY 3 DAYS
  7. ATROVENT [Concomitant]
     Dosage: 1 PUFF EVERY 8 HOURS PRN
  8. OMEPRAZOLE [Concomitant]
     Route: 048
  9. FISH OIL [Concomitant]
     Route: 048
  10. FLONASE [Concomitant]
     Dosage: 4 SPRAYS DAILY
  11. AMBIEN [Concomitant]
  12. ENALAPRIL MALEATE AND HYDROCHLOROTHIAZIDE [Concomitant]
     Dosage: 5-12.5 MG DAILY
     Route: 048
  13. TRAZODONE [Concomitant]
     Route: 048
  14. XANAX [Concomitant]
     Route: 048
  15. METFORMIN [Concomitant]
     Route: 048
  16. CELEXA [Concomitant]
     Route: 048
  17. COLACE [Concomitant]
  18. QVAR 40 [Concomitant]
     Dosage: 40 MCG, 2 PUFFS TWICE DAILY
  19. NASONEX [Concomitant]
     Indication: HYPERSENSITIVITY
     Dosage: 2 PRAYS TWICE DAILY
  20. MULTIPLE VITAMIN [Concomitant]
     Route: 048
  21. OXYCODONE [Concomitant]
     Route: 048
  22. LIDODERM [Concomitant]
     Dosage: 5 % (700 MG/PATCH) ADHESIVE PATCH, MEDICATED, ON 12 HOURS OFF 12 HOUR
  23. PAXIL [Concomitant]
     Route: 048
  24. NEXIUM [Suspect]
     Route: 048
  25. LYRICA [Concomitant]
     Indication: NEUROPATHY PERIPHERAL
     Route: 048
  26. MUCINEX [Concomitant]

REACTIONS (10)
  - MYOCARDIAL INFARCTION [None]
  - PYREXIA [None]
  - BACTERIAL INFECTION [None]
  - BRADYCARDIA [None]
  - OESOPHAGEAL CANDIDIASIS [None]
  - LEUKOCYTOSIS [None]
  - SYNCOPE [None]
  - VOMITING [None]
  - CARDIAC ASSISTANCE DEVICE USER [None]
  - ULCER [None]
